FAERS Safety Report 16558805 (Version 1)
Quarter: 2019Q3

REPORT INFORMATION
  Report Type: Spontaneous
  Country: US (occurrence: US)
  Receive Date: 20190710
  Receipt Date: 20190710
  Transmission Date: 20191004
  Serious: Yes (Other)
  Sender: FDA-Public Use
  Company Number: None

PATIENT
  Age: 64 Year
  Sex: Male
  Weight: 63 kg

DRUGS (2)
  1. EQUATE RESTORE PM NIGHTTIME LUBRICANT EYE [Suspect]
     Active Substance: MINERAL OIL\PETROLATUM
     Indication: EYE PRURITUS
     Route: 047
     Dates: start: 20190625, end: 20190707
  2. DAILY VITAMIN FOR SENIORS [Concomitant]

REACTIONS (3)
  - Eye swelling [None]
  - Ocular hyperaemia [None]
  - Recalled product [None]

NARRATIVE: CASE EVENT DATE: 20190627
